FAERS Safety Report 6346073-0 (Version None)
Quarter: 2009Q3

REPORT INFORMATION
  Report Type: 
  Country: None (occurrence: None)
  Receive Date: 20090903
  Receipt Date: 20080716
  Transmission Date: 20100115
  Serious: Yes (Other)
  Sender: FDA-Public Use
  Company Number: WAES 0807USA03370

PATIENT
  Age: 50 Year
  Sex: Female

DRUGS (1)
  1. MAXALT [Suspect]
     Indication: MIGRAINE
     Dosage: 10 MG/1X/PO
     Route: 048
     Dates: start: 20080712, end: 20080712

REACTIONS (1)
  - CHEST DISCOMFORT [None]
